FAERS Safety Report 9194219 (Version 1)
Quarter: 2013Q1

REPORT INFORMATION
  Report Type: Spontaneous
  Country: IT (occurrence: IT)
  Receive Date: 20130327
  Receipt Date: 20130327
  Transmission Date: 20140127
  Serious: Yes (Hospitalization)
  Sender: FDA-Public Use
  Company Number: IT-OTSUKA-EU-2013-10080

PATIENT
  Age: 81 Year
  Sex: Male

DRUGS (4)
  1. PLETAAL [Suspect]
     Indication: DIABETIC VASCULAR DISORDER
     Dosage: 100 MG MILLIGRAM(S), QD
     Route: 048
     Dates: start: 20130205, end: 20130215
  2. TAMSULOSIN [Suspect]
     Dosage: 0.4 MG MILLIGRAM(S), QD
     Route: 048
     Dates: start: 20121203, end: 20130215
  3. GLICLAZIDE [Concomitant]
     Dosage: UNK, UNKNOWN
     Route: 065
  4. METFORMIN HYDROCHLORIDE [Concomitant]
     Dosage: 2000 MG MILLIGRAM(S), DAILY DOSE
     Route: 065

REACTIONS (2)
  - Tachyarrhythmia [Recovering/Resolving]
  - Hypotension [Recovering/Resolving]
